APPROVED DRUG PRODUCT: QUETIAPINE FUMARATE
Active Ingredient: QUETIAPINE FUMARATE
Strength: EQ 200MG BASE
Dosage Form/Route: TABLET;ORAL
Application: A205983 | Product #004
Applicant: IPCA LABORATORIES LTD
Approved: May 20, 2024 | RLD: No | RS: No | Type: DISCN